FAERS Safety Report 12463927 (Version 1)
Quarter: 2016Q2

REPORT INFORMATION
  Report Type: Spontaneous
  Country: DK (occurrence: DK)
  Receive Date: 20160614
  Receipt Date: 20160614
  Transmission Date: 20160815
  Serious: Yes (Hospitalization)
  Sender: FDA-Public Use
  Company Number: DK-TEVA-666275ACC

PATIENT
  Age: 66 Year
  Sex: Female

DRUGS (2)
  1. SERTRALINE [Concomitant]
     Active Substance: SERTRALINE HYDROCHLORIDE
     Indication: DEPRESSION
  2. LAMOTRIGIN ^TEVA^ [Suspect]
     Active Substance: LAMOTRIGINE
     Indication: DEPRESSION
     Dosage: 25 MILLIGRAM DAILY; STRENGTH: 25 MG
     Route: 048
     Dates: start: 201604, end: 20160425

REACTIONS (2)
  - Obsessive thoughts [Unknown]
  - Anxiety [Unknown]

NARRATIVE: CASE EVENT DATE: 20160425
